FAERS Safety Report 10425459 (Version 2)
Quarter: 2015Q2

REPORT INFORMATION
  Report Type: Spontaneous
  Country: US (occurrence: None)
  Receive Date: 20140722
  Receipt Date: 20150420
  Transmission Date: 20150821
  Serious: Yes (Other)
  Sender: FDA-Public Use
  Company Number: AEGR000412

PATIENT
  Age: 71 Year
  Sex: Female
  Weight: 56.2 kg

DRUGS (3)
  1. AMOXICILLIN (AMOXICILLIN TRIHYDRATE) [Suspect]
     Active Substance: AMOXICILLIN
     Indication: PRODUCT USED FOR UNKNOWN INDICATION
  2. JUXTAPID [Suspect]
     Active Substance: LOMITAPIDE MESYLATE
     Indication: TYPE IIA HYPERLIPIDAEMIA
     Route: 048
     Dates: start: 20140324, end: 201412
  3. DIFLUCAN [Suspect]
     Active Substance: FLUCONAZOLE
     Indication: PRODUCT USED FOR UNKNOWN INDICATION

REACTIONS (9)
  - Fungal infection [None]
  - Weight decreased [None]
  - Nausea [None]
  - Therapy cessation [None]
  - Tooth infection [None]
  - Hepatomegaly [None]
  - Liver function test abnormal [None]
  - Contraindicated drug administered [None]
  - Flatulence [None]

NARRATIVE: CASE EVENT DATE: 201404
